FAERS Safety Report 5105638-4 (Version None)
Quarter: 2006Q3

REPORT INFORMATION
  Report Type: 
  Country: None (occurrence: None)
  Receive Date: 20060731
  Receipt Date: 20060509
  Transmission Date: 20061208
  Serious: Yes (Other)
  Sender: FDA-Public Use
  Company Number: US-JNJFOC-20060502250

PATIENT
  Age: 37 Year
  Sex: Male
  Weight: 108.8633 kg

DRUGS (2)
  1. RISPERDAL [Suspect]
     Indication: BIPOLAR DISORDER
     Dosage: 7 MG, IN 1 DAY, ORAL
     Route: 048
     Dates: end: 20050801
  2. METFORMIN HCL [Concomitant]

REACTIONS (2)
  - DIABETES MELLITUS NON-INSULIN-DEPENDENT [None]
  - TARDIVE DYSKINESIA [None]
